FAERS Safety Report 12620568 (Version 2)
Quarter: 2016Q3

REPORT INFORMATION
  Report Type: Spontaneous
  Country: US (occurrence: US)
  Receive Date: 20160804
  Receipt Date: 20160926
  Transmission Date: 20161109
  Serious: No
  Sender: FDA-Public Use
  Company Number: US-009507513-1607USA007819

PATIENT
  Sex: Male

DRUGS (2)
  1. BELSOMRA [Suspect]
     Active Substance: SUVOREXANT
     Indication: INSOMNIA
     Dosage: 10 MG, UNK
     Route: 048
     Dates: start: 201607, end: 201607
  2. BELSOMRA [Suspect]
     Active Substance: SUVOREXANT
     Dosage: 15 MG, UNK
     Route: 048
     Dates: start: 201607, end: 201607

REACTIONS (3)
  - Aggression [Unknown]
  - Sleep disorder [Unknown]
  - Middle insomnia [Unknown]

NARRATIVE: CASE EVENT DATE: 201607
